FAERS Safety Report 6203555-X (Version None)
Quarter: 2009Q2

REPORT INFORMATION
  Report Type: 
  Country: None (occurrence: None)
  Receive Date: 20090527
  Receipt Date: 20090522
  Transmission Date: 20091009
  Serious: Yes (Other)
  Sender: FDA-Public Use
  Company Number: JP-BRISTOL-MYERS SQUIBB COMPANY-14635247

PATIENT

DRUGS (1)
  1. RESLIN [Suspect]

REACTIONS (1)
  - RESPIRATORY DISORDER NEONATAL [None]
